FAERS Safety Report 7085848-X (Version None)
Quarter: 2010Q4

REPORT INFORMATION
  Report Type: 
  Country: None (occurrence: None)
  Receive Date: 20101105
  Receipt Date: 20101026
  Transmission Date: 20110411
  Serious: Yes (Other)
  Sender: FDA-Public Use
  Company Number: US-ROCHE-737630

PATIENT
  Sex: Female

DRUGS (6)
  1. AVASTIN [Suspect]
     Route: 042
     Dates: start: 20050101
  2. AVASTIN [Suspect]
     Route: 042
     Dates: start: 20080101, end: 20080701
  3. AVASTIN [Suspect]
     Route: 042
     Dates: start: 20101018
  4. FOLFOX REGIMEN [Suspect]
     Route: 042
     Dates: start: 20050101
  5. FOLFOX REGIMEN [Suspect]
     Route: 042
     Dates: start: 20080101, end: 20080701
  6. FOLFOX REGIMEN [Suspect]
     Route: 042
     Dates: start: 20101018

REACTIONS (1)
  - MALIGNANT NEOPLASM PROGRESSION [None]
